FAERS Safety Report 21354078 (Version 1)
Quarter: 2022Q3

REPORT INFORMATION
  Report Type: Spontaneous
  Country: US (occurrence: None)
  Receive Date: 20220919
  Receipt Date: 20220919
  Transmission Date: 20221027
  Serious: No
  Sender: FDA-Public Use
  Company Number: None

PATIENT
  Age: 37 Year
  Sex: Female
  Weight: 60.75 kg

DRUGS (1)
  1. .DELTA.8-TETRAHYDROCANNABINOL\HERBALS [Suspect]
     Active Substance: .DELTA.8-TETRAHYDROCANNABINOL\HERBALS
     Dosage: OTHER QUANTITY : 1 GUMMY;?
     Dates: start: 20220916, end: 20220916

REACTIONS (3)
  - Feeling abnormal [None]
  - Euphoric mood [None]
  - Paranoia [None]

NARRATIVE: CASE EVENT DATE: 20220916
